FAERS Safety Report 21541604 (Version 4)
Quarter: 2023Q1

REPORT INFORMATION
  Report Type: Report from Study
  Country: US (occurrence: US)
  Receive Date: 20221102
  Receipt Date: 20230126
  Transmission Date: 20230418
  Serious: Yes (Other)
  Sender: FDA-Public Use
  Company Number: US-ABBVIE-22K-163-4413835-00

PATIENT
  Sex: Male

DRUGS (9)
  1. HUMIRA [Suspect]
     Active Substance: ADALIMUMAB
     Indication: Crohn^s disease
     Dosage: CITRATE FREE
     Route: 058
     Dates: start: 20211220
  2. HUMIRA [Suspect]
     Active Substance: ADALIMUMAB
     Dosage: INCREASED FREQUENCY, CITRATE FREE, LAST ADMINISTRATION: 2022
     Route: 058
     Dates: start: 202206
  3. HUMIRA [Suspect]
     Active Substance: ADALIMUMAB
     Dosage: DAY 29 CITRATE FREE, ONE IN ONCE
     Route: 058
     Dates: start: 20211207, end: 20211207
  4. HUMIRA [Suspect]
     Active Substance: ADALIMUMAB
     Dosage: LAST ADM DATE: 2022
     Route: 058
     Dates: start: 202207
  5. HUMIRA [Suspect]
     Active Substance: ADALIMUMAB
     Route: 058
  6. HUMIRA [Suspect]
     Active Substance: ADALIMUMAB
     Route: 058
     Dates: start: 20211109
  7. HUMIRA [Suspect]
     Active Substance: ADALIMUMAB
     Dosage: CITRATE FREE
     Route: 058
  8. HUMIRA [Suspect]
     Active Substance: ADALIMUMAB
     Route: 058
     Dates: start: 20211101
  9. HUMIRA [Suspect]
     Active Substance: ADALIMUMAB
     Route: 058

REACTIONS (41)
  - Periodontal disease [Recovering/Resolving]
  - Bowel movement irregularity [Unknown]
  - Fatigue [Not Recovered/Not Resolved]
  - Muscle spasms [Unknown]
  - Decreased appetite [Unknown]
  - Chills [Unknown]
  - Sinus disorder [Recovered/Resolved]
  - Malaise [Unknown]
  - Impaired quality of life [Unknown]
  - Weight fluctuation [Unknown]
  - Loss of personal independence in daily activities [Not Recovered/Not Resolved]
  - Off label use [Unknown]
  - Asthenia [Unknown]
  - Abdominal rigidity [Unknown]
  - Night sweats [Unknown]
  - Gastrointestinal sounds abnormal [Recovered/Resolved]
  - Anxiety [Unknown]
  - Depressed mood [Unknown]
  - Constipation [Unknown]
  - Muscle atrophy [Unknown]
  - Diarrhoea [Unknown]
  - Nausea [Unknown]
  - Arthralgia [Not Recovered/Not Resolved]
  - Anxiety [Unknown]
  - Drug level decreased [Unknown]
  - Gastroenteritis viral [Recovered/Resolved]
  - Vomiting [Unknown]
  - Abdominal distension [Unknown]
  - Crohn^s disease [Unknown]
  - Tooth restoration [Unknown]
  - Diabetes mellitus [Unknown]
  - Frequent bowel movements [Unknown]
  - Gastrointestinal disorder [Unknown]
  - Unevaluable event [Unknown]
  - Vomiting [Recovered/Resolved]
  - Abdominal pain [Unknown]
  - Dyspepsia [Unknown]
  - Nasopharyngitis [Recovered/Resolved]
  - Flatulence [Unknown]
  - Abdominal pain upper [Unknown]
  - Unevaluable event [Unknown]

NARRATIVE: CASE EVENT DATE: 20220101
